FAERS Safety Report 9852698 (Version 1)
Quarter: 2014Q1

REPORT INFORMATION
  Report Type: Spontaneous
  Country: US (occurrence: None)
  Receive Date: 20140128
  Receipt Date: 20140128
  Transmission Date: 20141002
  Serious: Yes (Other)
  Sender: FDA-Public Use
  Company Number: None

PATIENT
  Age: 78 Year
  Sex: Female
  Weight: 86.18 kg

DRUGS (8)
  1. KLOR CON M [Suspect]
     Indication: BLOOD POTASSIUM DECREASED
     Dosage: 2 PILLS (TOTAL OF 4) TWICE DAILY FOR 1 DAY ONLY BY MOUTH
     Route: 048
     Dates: start: 20131025, end: 20131025
  2. ALLOPURINOL [Concomitant]
  3. OMEPROZOLE [Concomitant]
  4. BYSTOLIC [Concomitant]
  5. HYDROCHLOROT [Concomitant]
  6. AMLODIPINE [Concomitant]
  7. LOW DOSE ASPIRIN [Concomitant]
  8. MULTIVITAMIN [Concomitant]

REACTIONS (2)
  - Rash erythematous [None]
  - Erythema [None]
